FAERS Safety Report 10225558 (Version 1)
Quarter: 2014Q1

REPORT INFORMATION
  Report Type: Spontaneous
  Country: US (occurrence: None)
  Receive Date: 20140306
  Receipt Date: 20140306
  Transmission Date: 20141002
  Serious: Yes (Disabling)
  Sender: FDA-Public Use
  Company Number: 163-21880-13113130

PATIENT
  Age: 73 Year
  Sex: Male

DRUGS (1)
  1. REVLIMID [Suspect]
     Indication: MYELODYSPLASTIC SYNDROME
     Route: 048
     Dates: start: 20130410, end: 20130701

REACTIONS (5)
  - Diarrhoea [None]
  - Diarrhoea haemorrhagic [None]
  - Full blood count decreased [None]
  - Dehydration [None]
  - No therapeutic response [None]
